FAERS Safety Report 22536111 (Version 1)
Quarter: 2023Q2

REPORT INFORMATION
  Report Type: Spontaneous
  Country: US (occurrence: US)
  Receive Date: 20230608
  Receipt Date: 20230608
  Transmission Date: 20230722
  Serious: Yes (Hospitalization, Other)
  Sender: FDA-Public Use
  Company Number: US-FreseniusKabi-FK202308103

PATIENT
  Age: 65 Year
  Sex: Male

DRUGS (15)
  1. DEXAMETHASONE [Suspect]
     Active Substance: DEXAMETHASONE
     Indication: Acute myeloid leukaemia
  2. DEXAMETHASONE [Suspect]
     Active Substance: DEXAMETHASONE
  3. CLADRIBINE [Suspect]
     Active Substance: CLADRIBINE
     Indication: Acute myeloid leukaemia
  4. CYTARABINE [Suspect]
     Active Substance: CYTARABINE
     Indication: Acute myeloid leukaemia
  5. MITOXANTRONE [Suspect]
     Active Substance: MITOXANTRONE HYDROCHLORIDE
     Indication: Acute myeloid leukaemia
  6. VINCRISTINE [Suspect]
     Active Substance: VINCRISTINE
     Indication: Acute myeloid leukaemia
  7. VINCRISTINE [Suspect]
     Active Substance: VINCRISTINE
  8. FILGRASTIM [Suspect]
     Active Substance: FILGRASTIM
     Indication: Acute myeloid leukaemia
  9. DOXORUBICIN [Concomitant]
     Active Substance: DOXORUBICIN
     Indication: Acute myeloid leukaemia
  10. METHOTREXATE [Concomitant]
     Active Substance: METHOTREXATE
     Indication: Acute myeloid leukaemia
  11. CYCLOPHOSPHAMIDE [Concomitant]
     Active Substance: CYCLOPHOSPHAMIDE
     Indication: Acute myeloid leukaemia
  12. FLUDARABINE [Concomitant]
     Active Substance: FLUDARABINE PHOSPHATE
     Indication: Prophylaxis against graft versus host disease
  13. TACROLIMUS [Concomitant]
     Active Substance: TACROLIMUS
     Indication: Prophylaxis against graft versus host disease
  14. MYCOPHENOLATE MOFETIL [Concomitant]
     Active Substance: MYCOPHENOLATE MOFETIL
     Indication: Prophylaxis against graft versus host disease
  15. PENTOSTATIN [Concomitant]
     Active Substance: PENTOSTATIN
     Indication: Prophylaxis against graft versus host disease

REACTIONS (2)
  - Neutropenic sepsis [Recovered/Resolved]
  - Toxicity to various agents [Recovered/Resolved]
